FAERS Safety Report 25951686 (Version 1)
Quarter: 2025Q4

REPORT INFORMATION
  Report Type: Spontaneous
  Country: US (occurrence: US)
  Receive Date: 20251023
  Receipt Date: 20251023
  Transmission Date: 20260118
  Serious: Yes (Other)
  Sender: SANOFI AVENTIS
  Company Number: US-DialogSolutions-SAAVPROD-PI832189-C3

PATIENT
  Age: 4 Year
  Sex: Female

DRUGS (1)
  1. INSULIN ASPART [Suspect]
     Active Substance: INSULIN ASPART
     Indication: Type 1 diabetes mellitus
     Dosage: UNK

REACTIONS (9)
  - Injection site granuloma [Recovered/Resolved]
  - Injection site nodule [Recovered/Resolved]
  - Skin atrophy [Recovered/Resolved]
  - Injection site induration [Recovered/Resolved]
  - Skin plaque [Recovered/Resolved]
  - Scab [Recovered/Resolved]
  - Skin depigmentation [Recovered/Resolved]
  - Inflammation [Recovered/Resolved]
  - Soft tissue necrosis [Recovered/Resolved]
